FAERS Safety Report 10898619 (Version 1)
Quarter: 2015Q1

REPORT INFORMATION
  Report Type: Report from Study
  Country: US (occurrence: US)
  Receive Date: 20150309
  Receipt Date: 20150309
  Transmission Date: 20150721
  Serious: No
  Sender: FDA-Public Use
  Company Number: US-ABBVIE-14P-163-1254322-00

PATIENT
  Age: 37 Year
  Sex: Female

DRUGS (2)
  1. TOPIRAMATE. [Concomitant]
     Active Substance: TOPIRAMATE
     Indication: MIGRAINE
  2. LUPRON DEPOT [Suspect]
     Active Substance: LEUPROLIDE ACETATE
     Indication: ENDOMETRIOSIS
     Dates: start: 20140328

REACTIONS (7)
  - Abdominal pain upper [Recovering/Resolving]
  - Amenorrhoea [Unknown]
  - Pelvic pain [Recovered/Resolved]
  - Drug ineffective [Unknown]
  - Pelvic pain [Not Recovered/Not Resolved]
  - Pelvic pain [Recovered/Resolved]
  - Diarrhoea [Recovering/Resolving]

NARRATIVE: CASE EVENT DATE: 20140414
